FAERS Safety Report 12961350 (Version 1)
Quarter: 2016Q4

REPORT INFORMATION
  Report Type: Spontaneous
  Country: US (occurrence: US)
  Receive Date: 20161121
  Receipt Date: 20161121
  Transmission Date: 20170207
  Serious: Yes (Other)
  Sender: FDA-Public Use
  Company Number: US-PFIZER INC-2016535820

PATIENT
  Age: 66 Year
  Sex: Female
  Weight: 77.11 kg

DRUGS (2)
  1. PRISTIQ EXTENDED-RELEASE [Suspect]
     Active Substance: DESVENLAFAXINE SUCCINATE
     Indication: DEPRESSION
     Dosage: 50 MG, ONE AT NIGHT
     Route: 048
     Dates: start: 2009
  2. CLONAZEPAM. [Concomitant]
     Active Substance: CLONAZEPAM
     Indication: MUSCLE SPASMS
     Dosage: 1 MG, 2X/DAY
     Route: 048

REACTIONS (5)
  - Concussion [Unknown]
  - Fall [Unknown]
  - Myocardial infarction [Unknown]
  - Amnesia [Unknown]
  - Constipation [Unknown]

NARRATIVE: CASE EVENT DATE: 201610
